FAERS Safety Report 4406594-4 (Version None)
Quarter: 2004Q3

REPORT INFORMATION
  Report Type: 
  Country: None (occurrence: None)
  Receive Date: 20040723
  Receipt Date: 20040712
  Transmission Date: 20050211
  Serious: Yes (Death, Life-Threatening)
  Sender: FDA-Public Use
  Company Number: GB-GLAXOSMITHKLINE-B0338773A

PATIENT
  Age: 43 Year
  Sex: Male
  Weight: 80 kg

DRUGS (10)
  1. AMOXICILLIN [Suspect]
     Indication: STREPTOCOCCAL SEPSIS
     Dosage: 2G THREE TIMES PER DAY
     Route: 042
     Dates: start: 20040624, end: 20040628
  2. CLARITHROMYCIN [Concomitant]
     Dosage: 300MG PER DAY
     Route: 042
     Dates: start: 20040624, end: 20040625
  3. PABRINEX [Concomitant]
     Indication: ALCOHOLISM
     Route: 042
     Dates: start: 20040624, end: 20040626
  4. ASCORBIC ACID [Concomitant]
     Indication: ALCOHOLISM
     Dosage: 1G PER DAY
     Route: 042
     Dates: start: 20040625, end: 20040629
  5. ZINC [Concomitant]
     Route: 042
     Dates: start: 20040625, end: 20040627
  6. FOLIC ACID [Concomitant]
     Route: 042
     Dates: start: 20040625, end: 20040627
  7. METOCLOPRAMIDE [Concomitant]
     Dosage: 10MG PER DAY
     Route: 042
     Dates: start: 20040625, end: 20040629
  8. ERYTHROMYCIN [Concomitant]
     Dosage: 125MG PER DAY
     Route: 042
     Dates: start: 20040625, end: 20040628
  9. TAZOCIN [Concomitant]
     Dosage: 4.5G PER DAY
     Route: 042
     Dates: start: 20040628
  10. RANITIDINE [Concomitant]
     Dosage: 50MG PER DAY
     Route: 042
     Dates: start: 20040128

REACTIONS (2)
  - SEPSIS [None]
  - TOXIC EPIDERMAL NECROLYSIS [None]
